FAERS Safety Report 21666834 (Version 1)
Quarter: 2022Q4

REPORT INFORMATION
  Report Type: Spontaneous
  Country: US (occurrence: None)
  Receive Date: 20221130
  Receipt Date: 20221130
  Transmission Date: 20230113
  Serious: No
  Sender: FDA-Public Use
  Company Number: None

PATIENT
  Age: 17 Year
  Sex: Female

DRUGS (1)
  1. DUPIXENT [Suspect]
     Active Substance: DUPILUMAB
     Indication: Dermatitis atopic
     Dosage: 200MG EVERY 2 WEEKS SUB-Q?
     Route: 058
     Dates: start: 202207

REACTIONS (5)
  - Device malfunction [None]
  - Needle issue [None]
  - Device leakage [None]
  - Accidental exposure to product [None]
  - Product dose omission issue [None]

NARRATIVE: CASE EVENT DATE: 20221127
